FAERS Safety Report 9559804 (Version 1)
Quarter: 2013Q3

REPORT INFORMATION
  Report Type: Spontaneous
  Country: FR (occurrence: None)
  Receive Date: 20130925
  Receipt Date: 20130925
  Transmission Date: 20140515
  Serious: Yes (Death)
  Sender: FDA-Public Use
  Company Number: FK201304313

PATIENT
  Age: 90 Year
  Sex: Female

DRUGS (10)
  1. PIPERACILLIN / TAZOBACTAM [Suspect]
     Indication: PNEUMONIA
     Route: 041
     Dates: start: 20121228, end: 20121231
  2. AMOXICILLIN/CLAVULANIC ACID [Suspect]
     Indication: INFLAMMATION
     Route: 042
     Dates: start: 20121226, end: 20121228
  3. CIPROFLOXACIN [Suspect]
     Indication: PRODUCT USED FOR UNKNOWN INDICATION
     Route: 048
     Dates: start: 20121228, end: 20130103
  4. IMIPENEM CILASTATINE [Suspect]
     Indication: PRODUCT USED FOR UNKNOWN INDICATION
     Route: 042
     Dates: start: 20130101, end: 20130105
  5. MIANSERINE [Suspect]
     Indication: PRODUCT USED FOR UNKNOWN INDICATION
     Route: 048
     Dates: start: 20121226, end: 20130105
  6. EUPANTOL (PANTOPRAZOLE) (PANTOPRAZOLE) [Concomitant]
  7. DOLIPRANE (PARACETAMOL) (PARACETAMOL) [Concomitant]
  8. SERESTA (OXAZEPAM) (OXAZEPAM) [Concomitant]
  9. CORTANCYL (PREDNISONE) (PREDNISONE) [Concomitant]
  10. VALACICLOVIR [Suspect]
     Indication: PRODUCT USED FOR UNKNOWN INDICATION
     Route: 048
     Dates: start: 20121227, end: 20130105

REACTIONS (9)
  - Oxygen saturation decreased [None]
  - Haemoglobin decreased [None]
  - Agranulocytosis [None]
  - No therapeutic response [None]
  - Thrombocytopenia [None]
  - Haemorrhage [None]
  - Respiratory tract congestion [None]
  - General physical health deterioration [None]
  - Bicytopenia [None]
